FAERS Safety Report 14201767 (Version 1)
Quarter: 2017Q4

REPORT INFORMATION
  Report Type: Report from Study
  Country: US (occurrence: US)
  Receive Date: 20171117
  Receipt Date: 20171117
  Transmission Date: 20180321
  Serious: Yes (Death)
  Sender: FDA-Public Use
  Company Number: US-BAYER-2017-221978

PATIENT
  Age: 79 Year
  Sex: Female

DRUGS (1)
  1. STIVARGA [Suspect]
     Active Substance: REGORAFENIB
     Indication: COLON CANCER
     Dosage: 400 MG, QD, WITH FOOD FOR 21 DAYS ON AND 7 DAYS OFF AND REPEAT CYCLE AS DIRECTED
     Route: 048
     Dates: start: 20170918, end: 20171017

REACTIONS (3)
  - Off label use [None]
  - Cardiac disorder [Fatal]
  - Myocardial infarction [Fatal]
